FAERS Safety Report 21587735 (Version 2)
Quarter: 2022Q4

REPORT INFORMATION
  Report Type: Spontaneous
  Country: US (occurrence: US)
  Receive Date: 20221114
  Receipt Date: 20221116
  Transmission Date: 20230112
  Serious: No
  Sender: FDA-Public Use
  Company Number: US-ABBVIE-4197440

PATIENT
  Sex: Female

DRUGS (2)
  1. IMBRUVICA [Suspect]
     Active Substance: IBRUTINIB
     Indication: White blood cell disorder
     Dosage: LOWER DOSE
     Route: 048
     Dates: start: 202209
  2. IMBRUVICA [Suspect]
     Active Substance: IBRUTINIB
     Indication: White blood cell disorder
     Dosage: HIGHER DOSE
     Route: 048
     Dates: start: 202209, end: 2022

REACTIONS (2)
  - Rash [Recovered/Resolved]
  - Abdominal discomfort [Unknown]

NARRATIVE: CASE EVENT DATE: 20220101
